FAERS Safety Report 7950291-5 (Version None)
Quarter: 2011Q4

REPORT INFORMATION
  Report Type: 
  Country: None (occurrence: None)
  Receive Date: 20111130
  Receipt Date: 20111121
  Transmission Date: 20120403
  Serious: Yes (Hospitalization)
  Sender: FDA-Public Use
  Company Number: DE-US-EMD SERONO, INC.-7097282

PATIENT
  Sex: Male
  Weight: 35 kg

DRUGS (4)
  1. SAIZEN [Suspect]
     Route: 058
  2. SAIZEN [Suspect]
     Indication: GROWTH RETARDATION
     Route: 058
  3. SAIZEN [Suspect]
     Dates: end: 20110501
  4. SAIZEN [Suspect]
     Dates: start: 20110701

REACTIONS (1)
  - SURGERY [None]
